FAERS Safety Report 14531420 (Version 1)
Quarter: 2018Q1

REPORT INFORMATION
  Report Type: Spontaneous
  Country: US (occurrence: US)
  Receive Date: 20180214
  Receipt Date: 20180214
  Transmission Date: 20180509
  Serious: Yes (Other)
  Sender: FDA-Public Use
  Company Number: US-BAYER-2018-029623

PATIENT
  Age: 25 Year
  Sex: Female

DRUGS (2)
  1. MIRENA [Suspect]
     Active Substance: LEVONORGESTREL
     Dosage: 20 MCG/24HR, CONT
     Route: 015
     Dates: start: 20121101
  2. MIRENA [Suspect]
     Active Substance: LEVONORGESTREL

REACTIONS (7)
  - Headache [None]
  - Tinnitus [None]
  - Idiopathic intracranial hypertension [None]
  - Papilloedema [None]
  - Vision blurred [None]
  - Back pain [None]
  - Photophobia [None]

NARRATIVE: CASE EVENT DATE: 20160208
